FAERS Safety Report 15849574 (Version 2)
Quarter: 2019Q1

REPORT INFORMATION
  Report Type: Report from Study
  Country: PL (occurrence: PL)
  Receive Date: 20190121
  Receipt Date: 20190222
  Transmission Date: 20190417
  Serious: Yes (Other)
  Sender: FDA-Public Use
  Company Number: PL-ASTRAZENECA-2019SE12404

PATIENT

DRUGS (2)
  1. QUETIAPINE. [Suspect]
     Active Substance: QUETIAPINE
     Route: 048
  2. ST JOHN^S WORT [Interacting]
     Active Substance: ST. JOHN^S WORT
     Route: 065

REACTIONS (3)
  - Herbal interaction [Unknown]
  - Insomnia [Unknown]
  - Anxiety [Unknown]
